FAERS Safety Report 8361054-3 (Version None)
Quarter: 2012Q2

REPORT INFORMATION
  Report Type: 
  Country: None (occurrence: None)
  Receive Date: 20120515
  Receipt Date: 20120501
  Transmission Date: 20120825
  Serious: Yes (Hospitalization, Other)
  Sender: FDA-Public Use
  Company Number: JP-ROCHE-1044503

PATIENT
  Sex: Male
  Weight: 49 kg

DRUGS (13)
  1. NITRODERM [Concomitant]
     Dosage: DOSAGE IS UNCERTAIN.
     Route: 065
  2. TAMIFLU [Suspect]
     Indication: INFLUENZA
     Route: 048
     Dates: start: 20120212, end: 20120212
  3. ENALAPRIL MALEATE [Suspect]
     Route: 048
     Dates: start: 20120215, end: 20120216
  4. TAMIFLU [Suspect]
     Route: 048
     Dates: start: 20120213, end: 20120215
  5. ACETAMINOPHEN [Concomitant]
     Dosage: DOSAGE IS UNCERTAIN.
     Route: 048
  6. HEPARIN SODIUM [Concomitant]
     Dosage: DOSAGE IS UNCERTAIN.
     Route: 042
  7. LASIX [Concomitant]
     Dosage: DOSAGE IS UNCERTAIN.
     Route: 042
  8. AMOBAN [Concomitant]
     Indication: INSOMNIA
     Route: 048
     Dates: start: 20120212
  9. NITROGLYCERIN [Concomitant]
     Dosage: DOSAGE IS UNCERTAIN.
     Route: 041
  10. FUTHAN [Concomitant]
     Dosage: DOSAGE IS UNCERTAIN.
     Route: 042
  11. TAMIFLU [Suspect]
     Route: 048
     Dates: start: 20120216, end: 20120216
  12. ENALAPRIL MALEATE [Suspect]
     Indication: HYPERTENSION
     Route: 048
     Dates: start: 20120212, end: 20120214
  13. ROCEPHIN [Suspect]
     Indication: PNEUMONIA
     Route: 042
     Dates: start: 20120212, end: 20120215

REACTIONS (2)
  - ASPARTATE AMINOTRANSFERASE INCREASED [None]
  - BLOOD CREATINE PHOSPHOKINASE INCREASED [None]
